FAERS Safety Report 26200571 (Version 1)
Quarter: 2025Q4

REPORT INFORMATION
  Report Type: Spontaneous
  Country: US (occurrence: US)
  Receive Date: 20251225
  Receipt Date: 20251225
  Transmission Date: 20260117
  Serious: Yes (Life-Threatening, Hospitalization)
  Sender: AMGEN
  Company Number: US-AMGEN-USASP2025251935

PATIENT
  Age: 26 Year
  Sex: Male

DRUGS (2)
  1. PREDNISONE [Suspect]
     Active Substance: PREDNISONE
     Indication: Eczema
     Route: 065
  2. PREDNISONE [Suspect]
     Active Substance: PREDNISONE
     Indication: Off label use

REACTIONS (7)
  - Adrenocortical insufficiency acute [Recovering/Resolving]
  - Eczema [Recovering/Resolving]
  - Acute respiratory distress syndrome [Recovering/Resolving]
  - Influenza [Unknown]
  - Staphylococcal bacteraemia [Unknown]
  - Therapy cessation [Unknown]
  - Off label use [Unknown]
